FAERS Safety Report 7880483-5 (Version None)
Quarter: 2011Q4

REPORT INFORMATION
  Report Type: 
  Country: None (occurrence: None)
  Receive Date: 20111101
  Receipt Date: 20111019
  Transmission Date: 20120403
  Serious: Yes (Other)
  Sender: FDA-Public Use
  Company Number: BR-MEDIMMUNE-MEDI-0013483

PATIENT
  Sex: Female

DRUGS (3)
  1. SYNAGIS [Suspect]
     Route: 030
     Dates: start: 20110512, end: 20110809
  2. SPIRONOLACTONE [Concomitant]
     Route: 048
     Dates: start: 20110201
  3. SYNAGIS [Suspect]
     Indication: CARDIAC DISORDER
     Route: 030
     Dates: start: 20110414, end: 20110414

REACTIONS (3)
  - CONGENITAL HEART VALVE DISORDER [None]
  - CARDIAC FAILURE [None]
  - VOMITING [None]
